FAERS Safety Report 12213605 (Version 1)
Quarter: 2016Q1

REPORT INFORMATION
  Report Type: Spontaneous
  Country: FR (occurrence: FR)
  Receive Date: 20160328
  Receipt Date: 20160328
  Transmission Date: 20160526
  Serious: Yes (Other)
  Sender: FDA-Public Use
  Company Number: FR-IPSEN BIOPHARMACEUTICALS, INC.-2016-02538

PATIENT
  Age: 19 Year
  Sex: Male
  Weight: 48 kg

DRUGS (7)
  1. DYSPORT [Suspect]
     Active Substance: ABOBOTULINUMTOXINA
     Indication: DYSTONIA
  2. DYSPORT [Suspect]
     Active Substance: ABOBOTULINUMTOXINA
     Indication: DYSTONIA
     Dosage: 800 UNITS
     Route: 030
     Dates: start: 20150910, end: 20150910
  3. DYSPORT [Suspect]
     Active Substance: ABOBOTULINUMTOXINA
     Indication: PRODUCT USE ISSUE
  4. DYSPORT [Suspect]
     Active Substance: ABOBOTULINUMTOXINA
     Indication: DYSTONIA
  5. VENLAFAXINE [Suspect]
     Active Substance: VENLAFAXINE HYDROCHLORIDE
     Indication: PRODUCT USED FOR UNKNOWN INDICATION
     Route: 048
     Dates: end: 201509
  6. KALINOX [Concomitant]
     Active Substance: NITROUS OXIDE
     Dates: start: 20150910, end: 20150910
  7. DYSPORT [Suspect]
     Active Substance: ABOBOTULINUMTOXINA
     Indication: DYSTONIA

REACTIONS (7)
  - Condition aggravated [Recovered/Resolved]
  - Diplopia [Recovered/Resolved]
  - Aspiration [Recovered/Resolved]
  - Abasia [Recovered/Resolved]
  - Asthenia [Recovered/Resolved]
  - Hypotonia [Recovered/Resolved]
  - Muscular weakness [Recovered/Resolved]

NARRATIVE: CASE EVENT DATE: 201509
